FAERS Safety Report 22770295 (Version 4)
Quarter: 2023Q4

REPORT INFORMATION
  Report Type: Spontaneous
  Country: IT (occurrence: IT)
  Receive Date: 20230801
  Receipt Date: 20231208
  Transmission Date: 20240110
  Serious: Yes (Death, Other)
  Sender: FDA-Public Use
  Company Number: IT-SANDOZ-SDZ2023IT004722

PATIENT
  Age: 83 Year
  Sex: Male

DRUGS (3)
  1. BENDAMUSTINE [Suspect]
     Active Substance: BENDAMUSTINE
     Indication: Chemotherapy
     Dosage: 105 MG/M2, 3 CYCLES
     Route: 065
     Dates: start: 20220810, end: 20221028
  2. COPANLISIB [Suspect]
     Active Substance: COPANLISIB
     Indication: Chemotherapy
     Dosage: POWDER FOR SOLUTION FOR INJECTION
     Route: 065
     Dates: start: 20220810, end: 20221027
  3. RITUXIMAB [Suspect]
     Active Substance: RITUXIMAB
     Indication: Chemotherapy
     Dosage: CONCENTRATE FOR SOLUTION FOR INFUSION
     Route: 042
     Dates: start: 20220810, end: 20221027

REACTIONS (3)
  - Cachexia [Fatal]
  - Sepsis [Recovered/Resolved]
  - Pyrexia [Fatal]

NARRATIVE: CASE EVENT DATE: 20221028
